FAERS Safety Report 5500041-7 (Version None)
Quarter: 2007Q4

REPORT INFORMATION
  Report Type: 
  Country: None (occurrence: None)
  Receive Date: 20071024
  Receipt Date: 20071017
  Transmission Date: 20080405
  Serious: Yes (Death, Hospitalization)
  Sender: FDA-Public Use
  Company Number: TAP2007Q01381

PATIENT
  Age: 85 Year
  Sex: Male

DRUGS (16)
  1. LUPRON DEPOT-4 [Suspect]
     Indication: PROSTATE CANCER
     Dosage: 30 MG, 1 IN 4 M, INTRAMUSCULAR
     Route: 030
     Dates: start: 20070626
  2. FOSAMAX [Concomitant]
  3. COMBIGAN (COMBIGAN) [Concomitant]
  4. PLAVIX [Concomitant]
  5. PULMICORT [Concomitant]
  6. BISOPROLOL FUMARATE [Concomitant]
  7. HYZAAR [Concomitant]
  8. LIPIDIL [Concomitant]
  9. LANOXIN [Concomitant]
  10. SYNTHROID [Concomitant]
  11. CARBOCAL D(CARBACHOL) [Concomitant]
  12. NOVO-GLICLAZIDE (GLICLAZIDE) [Concomitant]
  13. NORVASC [Concomitant]
  14. OXEZE TUBUHALER [Concomitant]
  15. CIPROFLOXACIN [Concomitant]
  16. EPREX [Concomitant]

REACTIONS (3)
  - CEREBRAL HAEMORRHAGE [None]
  - DEEP VEIN THROMBOSIS [None]
  - ISCHAEMIC STROKE [None]
